FAERS Safety Report 17012371 (Version 3)
Quarter: 2019Q4

REPORT INFORMATION
  Report Type: Report from Study
  Country: US (occurrence: US)
  Receive Date: 20191108
  Receipt Date: 20191231
  Transmission Date: 20200122
  Serious: Yes (Hospitalization)
  Sender: FDA-Public Use
  Company Number: US-ACTELION-A-NJ2019-197851

PATIENT
  Age: 9 Month
  Sex: Male

DRUGS (4)
  1. TRACLEER [Suspect]
     Active Substance: BOSENTAN
     Indication: ESSENTIAL HYPERTENSION
     Dosage: 16 MG, BID
     Route: 048
     Dates: start: 20190820
  2. SYNAGIS [Concomitant]
     Active Substance: PALIVIZUMAB
  3. TRACLEER [Suspect]
     Active Substance: BOSENTAN
     Dosage: 16 MG, BID
     Route: 048
     Dates: start: 20191001
  4. SILDENAFIL. [Concomitant]
     Active Substance: SILDENAFIL
     Dosage: 2.9 MG, TID
     Route: 065

REACTIONS (2)
  - Respiratory disorder [Unknown]
  - Catheterisation cardiac [Unknown]

NARRATIVE: CASE EVENT DATE: 201910
